FAERS Safety Report 5513963-8 (Version None)
Quarter: 2007Q4

REPORT INFORMATION
  Report Type: 
  Country: None (occurrence: None)
  Receive Date: 20071106
  Receipt Date: 20070918
  Transmission Date: 20080405
  Serious: Yes (Other)
  Sender: FDA-Public Use
  Company Number: US-JNJFOC-20070904502

PATIENT
  Age: 37 Year
  Sex: Female

DRUGS (2)
  1. IBUPROFEN [Suspect]
     Indication: BACK DISORDER
     Dosage: 800 MG, 4 IN 1 DAY
     Dates: start: 19970101, end: 19970101
  2. IBUPROFEN [Suspect]
     Indication: INFLAMMATION
     Dosage: 800 MG, 4 IN 1 DAY
     Dates: start: 19970101, end: 19970101

REACTIONS (1)
  - RENAL INJURY [None]
